FAERS Safety Report 25566462 (Version 1)
Quarter: 2025Q3

REPORT INFORMATION
  Report Type: Spontaneous
  Country: US (occurrence: US)
  Receive Date: 20250716
  Receipt Date: 20250716
  Transmission Date: 20251020
  Serious: No
  Sender: NOVO NORDISK
  Company Number: US-NOVOPROD-1366187

PATIENT
  Age: 70 Year

DRUGS (1)
  1. OZEMPIC [Suspect]
     Active Substance: SEMAGLUTIDE
     Indication: Type 2 diabetes mellitus
     Dosage: 0.25 MG, QW
     Route: 058
     Dates: start: 20241026

REACTIONS (3)
  - Nervousness [Unknown]
  - Constipation [Not Recovered/Not Resolved]
  - Product communication issue [Unknown]

NARRATIVE: CASE EVENT DATE: 20241029
